FAERS Safety Report 5458176-3 (Version None)
Quarter: 2007Q3

REPORT INFORMATION
  Report Type: 
  Country: None (occurrence: None)
  Receive Date: 20070917
  Receipt Date: 20070830
  Transmission Date: 20080115
  Serious: Yes (Other)
  Sender: FDA-Public Use
  Company Number: PHBS2007DE14376

PATIENT
  Age: 79 Year
  Sex: Male

DRUGS (3)
  1. VISUDYNE [Suspect]
     Indication: CHOROIDAL NEOVASCULARISATION
  2. VISUDYNE [Suspect]
     Indication: MACULAR DEGENERATION
  3. BEVACIZUMAB [Suspect]

REACTIONS (3)
  - MACULAR OEDEMA [None]
  - RETINAL PIGMENT EPITHELIOPATHY [None]
  - VISUAL ACUITY REDUCED [None]
